FAERS Safety Report 22607243 (Version 2)
Quarter: 2023Q2

REPORT INFORMATION
  Report Type: Spontaneous
  Country: JP (occurrence: JP)
  Receive Date: 20230615
  Receipt Date: 20230623
  Transmission Date: 20230721
  Serious: Yes (Hospitalization)
  Sender: FDA-Public Use
  Company Number: JP-002147023-NVSJ2021JP017842

PATIENT
  Age: 27 Year
  Sex: Female

DRUGS (1)
  1. GILENYA [Suspect]
     Active Substance: FINGOLIMOD HYDROCHLORIDE
     Indication: Multiple sclerosis
     Dosage: 0.5 MG
     Route: 048

REACTIONS (5)
  - Hemiplegia [Recovering/Resolving]
  - Aphasia [Recovering/Resolving]
  - Altered state of consciousness [Recovering/Resolving]
  - Rebound effect [Recovered/Resolved]
  - Maternal exposure during pregnancy [Unknown]
